FAERS Safety Report 20785909 (Version 2)
Quarter: 2022Q2

REPORT INFORMATION
  Report Type: Report from Study
  Country: CL (occurrence: CL)
  Receive Date: 20220504
  Receipt Date: 20220516
  Transmission Date: 20220721
  Serious: Yes (Hospitalization)
  Sender: FDA-Public Use
  Company Number: CL-BRISTOL-MYERS SQUIBB COMPANY-2022-030265

PATIENT
  Age: 67 Year
  Sex: Female
  Weight: 54 kg

DRUGS (24)
  1. NIVOLUMAB [Suspect]
     Active Substance: NIVOLUMAB
     Indication: Breast cancer
     Dosage: LAST DOSE 120 ML ADMINISTERED ON 07-APR-2022
     Route: 042
     Dates: start: 20211130
  2. PACLITAXEL [Suspect]
     Active Substance: PACLITAXEL
     Indication: Breast cancer
     Dosage: LAST DOSE 124.8 MG ADMINISTERED ON 15-FEB-2022
     Route: 065
     Dates: start: 20211130
  3. CYCLOPHOSPHAMIDE [Suspect]
     Active Substance: CYCLOPHOSPHAMIDE
     Indication: Breast cancer
     Dosage: LAST DOSE 906 MG ADMINISTERED ON 07-APR-2022
     Route: 065
     Dates: start: 20220311
  4. DOXORUBICIN HYDROCHLORIDE [Suspect]
     Active Substance: DOXORUBICIN HYDROCHLORIDE
     Indication: Breast cancer
     Dosage: LAST DOSE 90.6 MG ADMINISTERED ON 07-APR-2022
     Route: 065
     Dates: start: 20220311
  5. ACETAMINOPHEN [Concomitant]
     Active Substance: ACETAMINOPHEN
     Indication: Product used for unknown indication
     Route: 048
     Dates: start: 20220110
  6. ATORVASTATIN [Concomitant]
     Active Substance: ATORVASTATIN
     Indication: Product used for unknown indication
     Route: 048
     Dates: start: 2006
  7. ESZOPICLONE [Concomitant]
     Active Substance: ESZOPICLONE
     Indication: Product used for unknown indication
     Route: 048
     Dates: start: 20220110
  8. OMEGA-3 ACIDS [Concomitant]
     Active Substance: OMEGA-3 FATTY ACIDS
     Indication: Prophylaxis
     Route: 048
     Dates: start: 2016
  9. METFORMIN [Concomitant]
     Active Substance: METFORMIN HYDROCHLORIDE
     Indication: Product used for unknown indication
     Route: 048
     Dates: start: 2006
  10. TRIMEBUTINE [Concomitant]
     Active Substance: TRIMEBUTINE
     Indication: Product used for unknown indication
     Route: 048
     Dates: start: 2006
  11. NETUPITANT [Concomitant]
     Active Substance: NETUPITANT
     Indication: Prophylaxis
     Route: 042
     Dates: start: 20220324
  12. PREDNISONE [Concomitant]
     Active Substance: PREDNISONE
     Indication: Prophylaxis
     Route: 048
     Dates: start: 20220331
  13. GLYCYRRHETINIC [Concomitant]
     Indication: Product used for unknown indication
     Dosage: 1 DF= 1 UNIT NOS
     Route: 061
     Dates: start: 20220331
  14. XILITOL [Concomitant]
     Indication: Product used for unknown indication
     Dosage: 1 DF= 10 UNIT NOS
     Route: 061
     Dates: start: 20220323
  15. HYDROCORTISONE 0.04% [Concomitant]
     Indication: Product used for unknown indication
     Dosage: 1 DF= 1 UNIT NOS
     Route: 061
     Dates: start: 20220406
  16. PEGFILGRASTIM [Concomitant]
     Active Substance: PEGFILGRASTIM
     Indication: Prophylaxis
     Route: 058
     Dates: start: 20220315
  17. METOCLOPRAMIDE [Concomitant]
     Active Substance: METOCLOPRAMIDE
     Indication: Prophylaxis
     Route: 048
     Dates: start: 20220311
  18. ONDANSENTRON [Concomitant]
     Indication: Prophylaxis
     Route: 048
     Dates: start: 20220311
  19. OLANZAPINE [Concomitant]
     Active Substance: OLANZAPINE
     Indication: Prophylaxis
     Route: 048
     Dates: start: 20220311
  20. DEXAMETHASONE [Concomitant]
     Active Substance: DEXAMETHASONE
     Indication: Prophylaxis
     Route: 048
     Dates: start: 20220311
  21. UREA 10% [Concomitant]
     Indication: Product used for unknown indication
     Dosage: 1 DF= 1 UNIT NOS
     Route: 061
     Dates: start: 20211220
  22. FENOTEROL HYDROBROMIDE\IPRATROPIUM BROMIDE [Concomitant]
     Active Substance: FENOTEROL HYDROBROMIDE\IPRATROPIUM BROMIDE
     Indication: Product used for unknown indication
     Dosage: 1 DF= 1 UNIT NOS
     Route: 055
     Dates: start: 20220420
  23. DESLORATADINE [Concomitant]
     Active Substance: DESLORATADINE
     Indication: Product used for unknown indication
     Route: 048
     Dates: start: 20220420
  24. LEVOFLOXACIN [Concomitant]
     Active Substance: LEVOFLOXACIN
     Indication: Product used for unknown indication
     Route: 048
     Dates: start: 20220420

REACTIONS (1)
  - Respiratory tract infection [Recovering/Resolving]

NARRATIVE: CASE EVENT DATE: 20220424
